FAERS Safety Report 10853334 (Version 2)
Quarter: 2015Q2

REPORT INFORMATION
  Report Type: Spontaneous
  Country: CZ (occurrence: CZ)
  Receive Date: 20150223
  Receipt Date: 20150422
  Transmission Date: 20150821
  Serious: Yes (Hospitalization, Other)
  Sender: FDA-Public Use
  Company Number: CZ-ACCORD-028683

PATIENT
  Age: 55 Year
  Sex: Male

DRUGS (10)
  1. DEXONA [Concomitant]
     Active Substance: DEXAMETHASONE
     Dosage: DEXONA 8MG + FR 100ML D1,
     Dates: start: 20150108
  2. CALCIUM GLUCONATE. [Concomitant]
     Active Substance: CALCIUM GLUCONATE
     Dosage: CA-GLUC 1AMP + G5% 250ML D1,
     Dates: start: 20150108
  3. ONDANSETRON/ONDANSETRON HYDROCHLORIDE [Concomitant]
     Dosage: ONDANSETRON 8MG + 100ML FR IV D2-4
     Dates: start: 20150108
  4. KYTRIL [Concomitant]
     Active Substance: GRANISETRON HYDROCHLORIDE
     Dosage: KYTRIL 3MG + FR 100ML D1-3,
     Dates: start: 20150108
  5. MANNITOL. [Concomitant]
     Active Substance: MANNITOL
     Dosage: MANITOL 20%80ML D1
     Dates: start: 20150108
  6. CISPLATIN. [Concomitant]
     Active Substance: CISPLATIN
     Indication: NEOPLASM MALIGNANT
     Dosage: CISPLATIN 140MG + R 1000ML D1
     Dates: start: 20150108
  7. FLUOROURACIL ACCORD [Suspect]
     Active Substance: FLUOROURACIL
     Indication: NEOPLASM MALIGNANT
     Dosage: STRENGTH: 50 MG/ML
     Dates: start: 20150108
  8. MAGNESIUM SULFATE. [Concomitant]
     Active Substance: MAGNESIUM SULFATE
     Dosage: MGSO4 10% 1 AMP + G5% 250ML D1
     Dates: start: 20150108
  9. DOCETAXEL. [Concomitant]
     Active Substance: DOCETAXEL
     Indication: NEOPLASM MALIGNANT
     Dosage: DOCETAXEL 120MG + FR 250ML D1
     Dates: start: 20150108
  10. RANITIDINE [Concomitant]
     Active Substance: RANITIDINE\RANITIDINE HYDROCHLORIDE
     Dosage: RANITAL 50MG AD 20ML FR D1
     Dates: start: 20150108

REACTIONS (5)
  - Diarrhoea [Recovered/Resolved]
  - Mucosal toxicity [Recovered/Resolved]
  - Haematotoxicity [Recovered/Resolved]
  - Nausea [Recovered/Resolved]
  - Aphthous stomatitis [Recovered/Resolved]

NARRATIVE: CASE EVENT DATE: 201501
